FAERS Safety Report 19252876 (Version 2)
Quarter: 2023Q2

REPORT INFORMATION
  Report Type: Spontaneous
  Country: US (occurrence: US)
  Receive Date: 20210513
  Receipt Date: 20230601
  Transmission Date: 20230722
  Serious: No
  Sender: FDA-Public Use
  Company Number: US-UCBSA-2020012988

PATIENT
  Sex: Male

DRUGS (12)
  1. CIMZIA [Suspect]
     Active Substance: CERTOLIZUMAB PEGOL
     Indication: Psoriasis
     Dosage: 200 MILLIGRAM, EV 2 WEEKS(QOW)
     Route: 058
  2. STELARA [Concomitant]
     Active Substance: USTEKINUMAB
  3. OTEZLA [Concomitant]
     Active Substance: APREMILAST
  4. REMICADE [Concomitant]
     Active Substance: INFLIXIMAB
  5. COSENTYX [Concomitant]
     Active Substance: SECUKINUMAB
  6. ENBREL [Concomitant]
     Active Substance: ETANERCEPT
  7. HUMIRA [Concomitant]
     Active Substance: ADALIMUMAB
  8. TALTZ [Concomitant]
     Active Substance: IXEKIZUMAB
  9. METHOTREXATE [Concomitant]
     Active Substance: METHOTREXATE
  10. SORIATANE [Concomitant]
     Active Substance: ACITRETIN
  11. TREMFYA [Concomitant]
     Active Substance: GUSELKUMAB
  12. NAPROXEN [Concomitant]
     Active Substance: NAPROXEN

REACTIONS (1)
  - Drug hypersensitivity [Unknown]
